FAERS Safety Report 4397957-4 (Version None)
Quarter: 2004Q3

REPORT INFORMATION
  Report Type: 
  Country: None (occurrence: None)
  Receive Date: 20040713
  Receipt Date: 20040630
  Transmission Date: 20050211
  Serious: Yes (Other)
  Sender: FDA-Public Use
  Company Number: A0516691A

PATIENT
  Age: 87 Year
  Sex: Female

DRUGS (4)
  1. TAGAMET HB [Suspect]
     Indication: GASTROOESOPHAGEAL REFLUX DISEASE
     Dosage: AS REQUIRED/ORAL
     Route: 048
     Dates: start: 20040625, end: 20040629
  2. ASPIRIN [Concomitant]
  3. LOPERAMIDE HYDROCHLORIDE [Concomitant]
  4. PANTOPRAZOLE [Concomitant]

REACTIONS (3)
  - ASTHENIA [None]
  - DIZZINESS [None]
  - JAUNDICE [None]
